FAERS Safety Report 9026076 (Version 1)
Quarter: 2013Q1

REPORT INFORMATION
  Report Type: Spontaneous
  Country: US (occurrence: None)
  Receive Date: 20130107
  Receipt Date: 20130107
  Transmission Date: 20140127
  Serious: Yes (Other)
  Sender: FDA-Public Use
  Company Number: 2012-695

PATIENT
  Age: 67 Year
  Sex: Male
  Weight: 78.1 kg

DRUGS (7)
  1. PRIALT (ZICONOTIDE) INTRATHECAL INFUSION [Suspect]
     Indication: SPINAL FUSION SURGERY
     Dosage: UNK MCG, ONCE/HOUR, INTRATHECAL
     Route: 037
     Dates: start: 201205
  2. LYRICA (PREGABALIN) [Concomitant]
  3. CELEBREX (CELECOXIB) [Concomitant]
  4. ATORVASTATIN (ATORVASTATIN CALCIUM) [Concomitant]
  5. NEXIUM (ESOMEPRAZOLE MAGNESIUM) [Concomitant]
  6. PLAVIX (CLOPIDOGREL BISULFATE) [Concomitant]
  7. ASPIRIN (ACETYLSALICYLIC ACID) [Concomitant]

REACTIONS (8)
  - Chest pain [None]
  - Abnormal dreams [None]
  - Feeling abnormal [None]
  - Paraesthesia [None]
  - Mental status changes [None]
  - Hallucination [None]
  - Hypoaesthesia [None]
  - Burning sensation [None]
